FAERS Safety Report 10994238 (Version 1)
Quarter: 2015Q2

REPORT INFORMATION
  Report Type: Spontaneous
  Country: JP (occurrence: JP)
  Receive Date: 20150407
  Receipt Date: 20150407
  Transmission Date: 20150821
  Serious: Yes (Other)
  Sender: FDA-Public Use
  Company Number: JP-WATSON-2015-06661

PATIENT
  Age: 17 Year
  Sex: Female

DRUGS (2)
  1. HYDROXYZINE [Suspect]
     Active Substance: HYDROXYZINE\HYDROXYZINE HYDROCHLORIDE
     Indication: ANAESTHETIC PREMEDICATION
     Dosage: 50 MG, TOTAL
     Route: 030
  2. BENZYL ALCOHOL [Concomitant]
     Active Substance: BENZYL ALCOHOL
     Indication: ANAESTHETIC PREMEDICATION
     Dosage: 9.409 MG/ML, TOTAL
     Route: 030

REACTIONS (2)
  - Skin necrosis [Recovered/Resolved with Sequelae]
  - Injection site extravasation [Unknown]
